FAERS Safety Report 12949502 (Version 1)
Quarter: 2016Q4

REPORT INFORMATION
  Report Type: Spontaneous
  Country: US (occurrence: US)
  Receive Date: 20161116
  Receipt Date: 20161116
  Transmission Date: 20170207
  Serious: Yes (Hospitalization)
  Sender: FDA-Public Use
  Company Number: US-NOVOPROD-481570

PATIENT
  Age: 53 Year
  Sex: Male
  Weight: 73.94 kg

DRUGS (2)
  1. NOVOLOG MIX 70/30 [Suspect]
     Active Substance: INSULIN ASPART
     Indication: TYPE 2 DIABETES MELLITUS
     Dosage: 5 U, BID
     Route: 058
     Dates: start: 201509, end: 20160119
  2. METFORMIN [Concomitant]
     Active Substance: METFORMIN HYDROCHLORIDE
     Indication: TYPE 2 DIABETES MELLITUS
     Dosage: 1 TAB ORALLY TWICE DAILY WITH FOOD
     Route: 048

REACTIONS (1)
  - Hypoglycaemic unconsciousness [Recovered/Resolved]

NARRATIVE: CASE EVENT DATE: 20160119
